FAERS Safety Report 19684173 (Version 2)
Quarter: 2022Q4

REPORT INFORMATION
  Report Type: Other
  Country: DE (occurrence: DE)
  Receive Date: 20210811
  Receipt Date: 20221021
  Transmission Date: 20230112
  Serious: Yes (Hospitalization, Other)
  Sender: FDA-Public Use
  Company Number: DE-MACLEODS PHARMA UK LTD-MAC2021032199

PATIENT

DRUGS (12)
  1. CLOPIDOGREL [Suspect]
     Active Substance: CLOPIDOGREL BISULFATE
     Indication: Product used for unknown indication
     Dosage: 75 MILLIGRAM, BID; 2-0-0-0
     Route: 048
  2. ASPIRIN [Suspect]
     Active Substance: ASPIRIN
     Indication: Product used for unknown indication
     Dosage: 100 MILLIGRAM, QD; 0-1-0-0
     Route: 048
  3. HUMALOG [Concomitant]
     Active Substance: INSULIN LISPRO
     Indication: Product used for unknown indication
     Dosage: 1 IU/ML, BID; 6-6-0-0,SOLUTION FOR INJECTION / INFUSION
     Route: 058
  4. ATORVASTATIN [Concomitant]
     Active Substance: ATORVASTATIN
     Indication: Product used for unknown indication
     Dosage: 80 MILLIGRAM, QD; 0-0-1-0
     Route: 048
  5. METOPROLOL [Concomitant]
     Active Substance: METOPROLOL
     Indication: Product used for unknown indication
     Dosage: 47.5 MILLIGRAM, BID; 1-0-1-0
     Route: 048
  6. MOXONIDINE [Concomitant]
     Active Substance: MOXONIDINE
     Indication: Product used for unknown indication
     Dosage: 0.2 MILLIGRAM, BID; 1-0-1-0
     Route: 048
  7. VICTOZA [Concomitant]
     Active Substance: LIRAGLUTIDE
     Indication: Product used for unknown indication
     Dosage: UNK; 18/3 MG / ML, 1-0-0-0
     Route: 058
  8. VICTOZA [Concomitant]
     Active Substance: LIRAGLUTIDE
     Dosage: UNK (6 MG/ML, 1-0-0-0)
     Route: 058
  9. LEVEMIR [Concomitant]
     Active Substance: INSULIN DETEMIR
     Indication: Product used for unknown indication
     Dosage: UNK; 300/3 IU / ML, 0-0-0-12
     Route: 058
  10. LEVEMIR [Concomitant]
     Active Substance: INSULIN DETEMIR
     Dosage: UNK, 100 IE/ML, 0-0-0-12
     Route: 058
  11. CANDESARTAN COMP. AUROBINDO [Concomitant]
     Indication: Product used for unknown indication
     Dosage: UNK; 16/12.5 MG, 1-0-1-0
     Route: 048
  12. AMLODIPINE BESYLATE [Concomitant]
     Active Substance: AMLODIPINE BESYLATE
     Indication: Product used for unknown indication
     Dosage: 5 MILLIGRAM, BID; 1-0-1-0
     Route: 048

REACTIONS (4)
  - Cerebrovascular accident [Unknown]
  - Presyncope [Unknown]
  - Malaise [Unknown]
  - Duodenal ulcer haemorrhage [Unknown]
